FAERS Safety Report 13010950 (Version 1)
Quarter: 2016Q4

REPORT INFORMATION
  Report Type: Spontaneous
  Country: US (occurrence: US)
  Receive Date: 20161208
  Receipt Date: 20161208
  Transmission Date: 20170207
  Serious: Yes (Other)
  Sender: FDA-Public Use
  Company Number: US-BAYER-2016-231452

PATIENT
  Age: 67 Year
  Sex: Female
  Weight: 65.76 kg

DRUGS (7)
  1. LEVOTHYROXINE. [Concomitant]
     Active Substance: LEVOTHYROXINE
  2. OXYCODONE [Concomitant]
     Active Substance: OXYCODONE
     Dosage: UNK
  3. HUMIRA [Suspect]
     Active Substance: ADALIMUMAB
     Indication: RHEUMATOID ARTHRITIS
     Dosage: 40 MG IN 2-2, QD
     Route: 058
     Dates: start: 20140801
  4. HYDROCODONE [Concomitant]
     Active Substance: HYDROCODONE
  5. LISINOPRIL. [Concomitant]
     Active Substance: LISINOPRIL
     Dosage: UNK
  6. ALKA-SELTZER PLUS COLD FORMULA [Suspect]
     Active Substance: ASPIRIN\CHLORPHENIRAMINE MALEATE\PHENYLEPHRINE BITARTRATE
     Indication: ARTHRALGIA
     Dosage: UNK
     Route: 058
     Dates: end: 201511
  7. MULTIPLE VITAMINS [Concomitant]
     Active Substance: VITAMINS

REACTIONS (15)
  - Nasopharyngitis [Unknown]
  - Arthralgia [Unknown]
  - Product use issue [Unknown]
  - Expired product administered [None]
  - Hyperhidrosis [Not Recovered/Not Resolved]
  - Haematochezia [Recovering/Resolving]
  - Pyrexia [Not Recovered/Not Resolved]
  - Haematochezia [Recovering/Resolving]
  - Haematemesis [Recovering/Resolving]
  - Faeces discoloured [Not Recovered/Not Resolved]
  - Arthralgia [Unknown]
  - Blood disorder [Unknown]
  - Gastric ulcer [Recovering/Resolving]
  - Gastric ulcer [Recovering/Resolving]
  - Haematemesis [Recovering/Resolving]

NARRATIVE: CASE EVENT DATE: 2014
